FAERS Safety Report 5205447-1 (Version None)
Quarter: 2007Q1

REPORT INFORMATION
  Report Type: 
  Country: None (occurrence: None)
  Receive Date: 20070109
  Receipt Date: 20061107
  Transmission Date: 20070707
  Serious: Yes (Death, Hospitalization)
  Sender: FDA-Public Use
  Company Number: 163-20785-06110338

PATIENT
  Age: 70 Year
  Sex: Female

DRUGS (1)
  1. THALOMID [Suspect]
     Indication: MALIGNANT NEOPLASM OF UTERINE ADNEXA
     Dosage: 100-200 MG, DAILY, ORAL
     Route: 048
     Dates: start: 20060511, end: 20060101

REACTIONS (1)
  - PNEUMONIA FUNGAL [None]
